FAERS Safety Report 7022231-7 (Version None)
Quarter: 2010Q3

REPORT INFORMATION
  Report Type: 
  Country: None (occurrence: None)
  Receive Date: 20100924
  Receipt Date: 20100913
  Transmission Date: 20110219
  Serious: Yes (Hospitalization)
  Sender: FDA-Public Use
  Company Number: 018929

PATIENT
  Sex: Male

DRUGS (7)
  1. ROTIGOTINE (ROTIGOTINE) [Suspect]
     Indication: PARKINSON'S DISEASE
     Dosage: (2 MG TRANSDERMAL)
     Route: 062
     Dates: start: 20100902
  2. CARBIDOPA + LEVODOPA [Concomitant]
  3. SELEGILINE HYDROCHLORIDE [Concomitant]
  4. AMANTADINE HYDROCHLORIDE [Concomitant]
  5. SOLIFENACIN SUCCINATE [Concomitant]
  6. MIDODRINE HYDROCHLORIDE [Concomitant]
  7. ZOLPIDEM TARTRATE [Concomitant]

REACTIONS (8)
  - BACTERIAL TEST POSITIVE [None]
  - DECREASED APPETITE [None]
  - DEHYDRATION [None]
  - GENERAL PHYSICAL HEALTH DETERIORATION [None]
  - HEAT ILLNESS [None]
  - MOVEMENT DISORDER [None]
  - RENAL IMPAIRMENT [None]
  - SOMNOLENCE [None]
